FAERS Safety Report 5410818-4 (Version None)
Quarter: 2007Q3

REPORT INFORMATION
  Report Type: 
  Country: None (occurrence: None)
  Receive Date: 20070810
  Receipt Date: 20070803
  Transmission Date: 20080115
  Serious: Yes (Other)
  Sender: FDA-Public Use
  Company Number: PHBS2007BR03346

PATIENT
  Age: 48 Year
  Sex: Male
  Weight: 63 kg

DRUGS (6)
  1. TEGRETOL [Suspect]
     Indication: EPILEPSY
     Dosage: 200 MG, TID
     Route: 048
     Dates: end: 20070409
  2. GARDAN TAB [Concomitant]
     Indication: EPILEPSY
     Dosage: 500 MG/DAY
     Route: 048
  3. GARDAN TAB [Concomitant]
     Dosage: 450 MG/DAY
  4. MYSOLINE [Concomitant]
  5. TYLENOL (CAPLET) [Concomitant]
     Dosage: UNK, PRN
  6. TRILEPTAL [Suspect]
     Indication: EPILEPSY
     Dosage: 750 MG/DAY
     Route: 048
     Dates: start: 20050723

REACTIONS (23)
  - ANOREXIA [None]
  - ARTHRALGIA [None]
  - ASTHENIA [None]
  - BLINDNESS [None]
  - BRAIN DAMAGE [None]
  - COMA [None]
  - CONVULSION [None]
  - COORDINATION ABNORMAL [None]
  - DIZZINESS [None]
  - DRUG INEFFECTIVE [None]
  - DRY SKIN [None]
  - EPILEPSY [None]
  - GAIT DISTURBANCE [None]
  - HEADACHE [None]
  - HYPERMETROPIA [None]
  - HYPERSENSITIVITY [None]
  - INSOMNIA [None]
  - MOTOR DYSFUNCTION [None]
  - MYOPIA [None]
  - PRURITUS [None]
  - RASH ERYTHEMATOUS [None]
  - SEXUAL DYSFUNCTION [None]
  - SKIN EXFOLIATION [None]
